FAERS Safety Report 4627258-8 (Version None)
Quarter: 2005Q1

REPORT INFORMATION
  Report Type: 
  Country: None (occurrence: None)
  Receive Date: 20050331
  Receipt Date: 20050316
  Transmission Date: 20050727
  Serious: Yes (Death, Life-Threatening, Hospitalization, Disabling, Other)
  Sender: FDA-Public Use
  Company Number: A-CH2004-05242

PATIENT
  Age: 8 Year
  Sex: Female
  Weight: 21 kg

DRUGS (7)
  1. TRACLEER [Suspect]
     Indication: PULMONARY HYPERTENSION
     Dosage: 15 MG, BID, ORAL; 31.25 MG, BID, ORAL
     Route: 048
     Dates: start: 20031203, end: 20030106
  2. TRACLEER [Suspect]
     Indication: PULMONARY HYPERTENSION
     Dosage: 15 MG, BID, ORAL; 31.25 MG, BID, ORAL
     Route: 048
     Dates: start: 20040107, end: 20040209
  3. ALDACTONE [Concomitant]
  4. CAPTOPRIL [Concomitant]
  5. LASILIX (FUROSEMIDE) [Concomitant]
  6. PREVISCAN (FLUINDONE) [Concomitant]
  7. SINTROM [Concomitant]

REACTIONS (6)
  - CARDIAC FAILURE [None]
  - CARDIOMYOPATHY [None]
  - CONDITION AGGRAVATED [None]
  - GENERAL PHYSICAL HEALTH DETERIORATION [None]
  - INTRACARDIAC THROMBUS [None]
  - PULMONARY HYPERTENSION [None]
